FAERS Safety Report 6885133-2 (Version None)
Quarter: 2010Q3

REPORT INFORMATION
  Report Type: 
  Country: None (occurrence: None)
  Receive Date: 20100729
  Receipt Date: 20080115
  Transmission Date: 20110219
  Serious: No
  Sender: FDA-Public Use
  Company Number: US-PFIZER INC-2007099637

PATIENT
  Sex: Male

DRUGS (2)
  1. CELEBREX [Suspect]
  2. ATENOLOL [Concomitant]
     Dates: start: 20070701

REACTIONS (2)
  - DRUG INEFFECTIVE [None]
  - INSOMNIA [None]
